FAERS Safety Report 5012967-1 (Version None)
Quarter: 2006Q2

REPORT INFORMATION
  Report Type: 
  Country: None (occurrence: None)
  Receive Date: 20060530
  Receipt Date: 20060522
  Transmission Date: 20061013
  Serious: Yes (Other)
  Sender: FDA-Public Use
  Company Number: US-AVENTIS-200614589US

PATIENT
  Sex: Male

DRUGS (1)
  1. DDAVP [Suspect]
     Indication: ENURESIS
     Dosage: DOSE: UNK
     Route: 048
     Dates: start: 20051001

REACTIONS (1)
  - STEVENS-JOHNSON SYNDROME [None]
